FAERS Safety Report 8492890-0 (Version None)
Quarter: 2012Q3

REPORT INFORMATION
  Report Type: 
  Country: None (occurrence: None)
  Receive Date: 20120706
  Receipt Date: 20120629
  Transmission Date: 20120928
  Serious: Yes (Death, Hospitalization)
  Sender: FDA-Public Use
  Company Number: US-GLAXOSMITHKLINE-A0809448A

PATIENT
  Age: 52 Year
  Sex: Male

DRUGS (7)
  1. PREVACID [Concomitant]
  2. VOLTAREN [Concomitant]
  3. SIMVASTATIN [Concomitant]
  4. ATACAND [Concomitant]
  5. METFORMIN HCL [Concomitant]
  6. AVANDIA [Suspect]
     Indication: DIABETES MELLITUS
     Dosage: 4MG PER DAY
     Route: 048
     Dates: end: 20060701
  7. ACETAMINOPHEN [Concomitant]

REACTIONS (7)
  - MULTI-ORGAN FAILURE [None]
  - HEPATIC NECROSIS [None]
  - PULMONARY OEDEMA [None]
  - LIVER INJURY [None]
  - AORTIC ARTERIOSCLEROSIS [None]
  - ACUTE HEPATIC FAILURE [None]
  - RENAL FAILURE ACUTE [None]
